FAERS Safety Report 16877269 (Version 1)
Quarter: 2019Q4

REPORT INFORMATION
  Report Type: Spontaneous
  Country: US (occurrence: US)
  Receive Date: 20191002
  Receipt Date: 20191002
  Transmission Date: 20200122
  Serious: Yes (Hospitalization)
  Sender: FDA-Public Use
  Company Number: None

PATIENT
  Age: 66 Year
  Sex: Female
  Weight: 62.55 kg

DRUGS (7)
  1. PROPOFOL 200MG [Concomitant]
     Dates: start: 20181003, end: 20181003
  2. ACETAMINOPHEN 1G [Concomitant]
     Dates: start: 20181003, end: 20181003
  3. CELECOXIB 200MG [Concomitant]
     Active Substance: CELECOXIB
     Dates: start: 20181003, end: 20181003
  4. FENTANYL 100 MCG [Concomitant]
     Active Substance: FENTANYL
     Dates: start: 20181003, end: 20181003
  5. MIDAZOLAM 2MG [Concomitant]
     Dates: start: 20181003, end: 20181003
  6. LIDOCAINE. [Suspect]
     Active Substance: LIDOCAINE
     Indication: POSTOPERATIVE ANALGESIA
     Dosage: ?          OTHER FREQUENCY:1MG/MIN;?
     Route: 041
     Dates: start: 20181003, end: 20181003
  7. GABAPENTIN 600MG [Concomitant]
     Active Substance: GABAPENTIN
     Dates: start: 20181003, end: 20181003

REACTIONS (2)
  - Dizziness [None]
  - Diplopia [None]

NARRATIVE: CASE EVENT DATE: 20181003
